FAERS Safety Report 5036277-1 (Version None)
Quarter: 2006Q2

REPORT INFORMATION
  Report Type: 
  Country: None (occurrence: None)
  Receive Date: 20060601
  Receipt Date: 20060501
  Transmission Date: 20061013
  Serious: No
  Sender: FDA-Public Use
  Company Number: US200605000417

PATIENT
  Age: 72 Year
  Sex: Female

DRUGS (3)
  1. CYMBALTA [Suspect]
     Indication: TORTICOLLIS
     Dosage: 30 MG
     Dates: start: 20060424, end: 20060428
  2. SYNTHROID [Concomitant]
  3. MAXZIDE [Concomitant]

REACTIONS (4)
  - DRY MOUTH [None]
  - FEELING ABNORMAL [None]
  - NAUSEA [None]
  - ORAL INTAKE REDUCED [None]
